FAERS Safety Report 19962560 (Version 3)
Quarter: 2021Q4

REPORT INFORMATION
  Report Type: Spontaneous
  Country: US (occurrence: US)
  Receive Date: 20211018
  Receipt Date: 20211025
  Transmission Date: 20220303
  Serious: No
  Sender: FDA-Public Use
  Company Number: US-GLAXOSMITHKLINE-US2021AMR214360

PATIENT
  Sex: Male

DRUGS (9)
  1. WELLBUTRIN XL [Suspect]
     Active Substance: BUPROPION HYDROCHLORIDE
     Indication: Attention deficit hyperactivity disorder
     Dosage: UNK
  2. WELLBUTRIN XL [Suspect]
     Active Substance: BUPROPION HYDROCHLORIDE
     Indication: Depression
  3. WELLBUTRIN XL [Suspect]
     Active Substance: BUPROPION HYDROCHLORIDE
     Indication: Seasonal affective disorder
  4. WELLBUTRIN XL [Suspect]
     Active Substance: BUPROPION HYDROCHLORIDE
     Indication: Social anxiety disorder
  5. APLENZIN [Suspect]
     Active Substance: BUPROPION HYDROBROMIDE
     Indication: Attention deficit hyperactivity disorder
     Dosage: UNK
     Dates: start: 202109, end: 202109
  6. APLENZIN [Suspect]
     Active Substance: BUPROPION HYDROBROMIDE
     Indication: Depression
  7. APLENZIN [Suspect]
     Active Substance: BUPROPION HYDROBROMIDE
     Indication: Seasonal affective disorder
  8. APLENZIN [Suspect]
     Active Substance: BUPROPION HYDROBROMIDE
     Indication: Social anxiety disorder
  9. BUPROPION [Suspect]
     Active Substance: BUPROPION
     Indication: Product used for unknown indication
     Dosage: 150 MG

REACTIONS (10)
  - Trismus [Unknown]
  - Anger [Unknown]
  - Hypoaesthesia [Unknown]
  - Irritability [Unknown]
  - Tinnitus [Unknown]
  - Insomnia [Unknown]
  - Abdominal discomfort [Unknown]
  - Feeling abnormal [Unknown]
  - Treatment noncompliance [Unknown]
  - Inability to afford medication [Unknown]

NARRATIVE: CASE EVENT DATE: 20210901
